FAERS Safety Report 6719461-8 (Version None)
Quarter: 2010Q2

REPORT INFORMATION
  Report Type: 
  Country: None (occurrence: None)
  Receive Date: 20100510
  Receipt Date: 20100510
  Transmission Date: 20101027
  Serious: No
  Sender: FDA-Public Use
  Company Number: None

PATIENT
  Sex: Female
  Weight: 29.0302 kg

DRUGS (2)
  1. FLOVENT [Suspect]
     Indication: ASTHMA
     Dosage: 2 PUMPS BI INHAL
     Route: 055
     Dates: start: 20090101, end: 20100507
  2. FLOVENT DAILY [Concomitant]

REACTIONS (1)
  - BONE PAIN [None]
